FAERS Safety Report 24610209 (Version 1)
Quarter: 2024Q4

REPORT INFORMATION
  Report Type: Spontaneous
  Country: US (occurrence: US)
  Receive Date: 20241112
  Receipt Date: 20241112
  Transmission Date: 20250115
  Serious: Yes (Other)
  Sender: AUROBINDO
  Company Number: US-MLMSERVICE-20241023-PI237259-00271-1

PATIENT
  Age: 64 Year
  Sex: Female

DRUGS (3)
  1. METHYLPREDNISOLONE SODIUM SUCCINATE [Suspect]
     Active Substance: METHYLPREDNISOLONE SODIUM SUCCINATE
     Indication: Neurosarcoidosis
     Dosage: UNK
     Route: 042
  2. PREDNISONE [Suspect]
     Active Substance: PREDNISONE
     Indication: Neurosarcoidosis
     Dosage: UNK
     Route: 048
  3. METHYLPREDNISOLONE [Suspect]
     Active Substance: METHYLPREDNISOLONE
     Indication: Neurosarcoidosis
     Dosage: UNK
     Route: 042

REACTIONS (5)
  - Diabetes mellitus [Unknown]
  - Gastrooesophageal reflux disease [Recovering/Resolving]
  - Condition aggravated [Recovering/Resolving]
  - Tremor [Recovering/Resolving]
  - Rebound effect [Recovering/Resolving]
